FAERS Safety Report 17000174 (Version 1)
Quarter: 2019Q4

REPORT INFORMATION
  Report Type: Spontaneous
  Country: US (occurrence: US)
  Receive Date: 20190925
  Receipt Date: 20190925
  Transmission Date: 20200122
  Serious: No
  Sender: FDA-Public Use
  Company Number: None

PATIENT

DRUGS (2)
  1. PLAQUENIL [Suspect]
     Active Substance: HYDROXYCHLOROQUINE SULFATE
  2. METHOTREXATE. [Suspect]
     Active Substance: METHOTREXATE

REACTIONS (8)
  - Chills [None]
  - Pyrexia [None]
  - Wrong product administered [None]
  - Headache [None]
  - Product dispensing error [None]
  - Malaise [None]
  - Nausea [None]
  - Pain [None]

NARRATIVE: CASE EVENT DATE: 2019
